FAERS Safety Report 13097046 (Version 7)
Quarter: 2023Q1

REPORT INFORMATION
  Report Type: Spontaneous
  Country: US (occurrence: US)
  Receive Date: 20170109
  Receipt Date: 20230317
  Transmission Date: 20230417
  Serious: Yes (Other)
  Sender: FDA-Public Use
  Company Number: US-PFIZER INC-2017007183

PATIENT
  Age: 65 Year
  Sex: Female
  Weight: 98 kg

DRUGS (10)
  1. XELJANZ XR [Suspect]
     Active Substance: TOFACITINIB CITRATE
     Dosage: 11 MG, 1X/DAY
     Route: 048
     Dates: start: 20161206
  2. XELJANZ XR [Suspect]
     Active Substance: TOFACITINIB CITRATE
     Dosage: 11 MG, 1X/DAY (ONCE PER DAY AT NIGHT)
  3. LISINOPRIL [Concomitant]
     Active Substance: LISINOPRIL
     Indication: Blood pressure abnormal
     Dosage: UNK, 1X/DAY
  4. VENLAFAXINE [Concomitant]
     Active Substance: VENLAFAXINE HYDROCHLORIDE
     Indication: Depression
     Dosage: 225 MG, 1X/DAY (3 DOSES IN THE MORNING )
  5. VENLAFAXINE [Concomitant]
     Active Substance: VENLAFAXINE HYDROCHLORIDE
     Indication: Anxiety
  6. WELLBUTRIN [Concomitant]
     Active Substance: BUPROPION HYDROCHLORIDE
     Dosage: 300 MG, 1X/DAY (IN THE MORNING)
  7. MELOXICAM [Concomitant]
     Active Substance: MELOXICAM
     Dosage: 15 MG, 1X/DAY, AT NIGHT
  8. PRAVASTATIN [Concomitant]
     Active Substance: PRAVASTATIN
     Dosage: 40 MG, 1X/DAY, AT NIGHT
  9. METHOTREXATE [Concomitant]
     Active Substance: METHOTREXATE
     Dosage: 20 MG, WEEKLY, 8 TABLETS ON SATURDAY NIGHT
  10. FOLIC ACID [Concomitant]
     Active Substance: FOLIC ACID
     Dosage: 400 UG, 1X/DAY, ONE AT NIGHT

REACTIONS (13)
  - Pneumonia [Unknown]
  - Headache [Recovered/Resolved]
  - Mobility decreased [Unknown]
  - Arthritis [Unknown]
  - Fatigue [Unknown]
  - Fall [Unknown]
  - Pain [Unknown]
  - Feeling abnormal [Recovering/Resolving]
  - Arthralgia [Recovering/Resolving]
  - Limb discomfort [Recovering/Resolving]
  - Sensitivity to weather change [Unknown]
  - Cough [Unknown]
  - Emotional disorder [Unknown]

NARRATIVE: CASE EVENT DATE: 20161208
